FAERS Safety Report 9966028 (Version 1)
Quarter: 2014Q1

REPORT INFORMATION
  Report Type: Report from Study
  Country: US (occurrence: US)
  Receive Date: 20140305
  Receipt Date: 20140305
  Transmission Date: 20141002
  Serious: No
  Sender: FDA-Public Use
  Company Number: US-ABBVIE-13P-163-1127600-00

PATIENT
  Sex: Female

DRUGS (20)
  1. HUMIRA [Suspect]
     Indication: PSORIATIC ARTHROPATHY
     Dates: end: 201307
  2. ABILIFY [Concomitant]
     Indication: BIPOLAR DISORDER
     Route: 048
  3. VALTREX [Concomitant]
     Indication: HERPES VIRUS INFECTION
     Dosage: 1 GM DAILY
     Route: 048
  4. TOPAMAX [Concomitant]
     Indication: BIPOLAR DISORDER
     Route: 048
  5. VIMOVO [Concomitant]
     Indication: PAIN
     Route: 048
  6. CYMBALTA [Concomitant]
     Indication: FIBROMYALGIA
     Dosage: 60 MG DAILY
     Route: 048
  7. SAVELLA [Concomitant]
     Indication: FIBROMYALGIA
     Route: 048
  8. LEVOTHYROXINE [Concomitant]
     Indication: HYPOTHYROIDISM
     Dosage: 0.075MG BY MOUTH 6 DAYS A WEEK
     Route: 048
  9. ZETIA [Concomitant]
     Indication: BLOOD CHOLESTEROL INCREASED
     Dosage: 10MG DAILY
     Route: 048
  10. VITAMIN B12 [Concomitant]
     Indication: GASTRIC BYPASS
     Route: 050
  11. POTASSIUM CHLORIDE [Concomitant]
     Indication: HYPOKALAEMIA
     Dosage: 10MG DAILY
     Route: 048
  12. PLAQUENIL [Concomitant]
     Indication: ARTHRITIS
     Route: 048
  13. BIOTIN [Concomitant]
     Indication: GASTRIC BYPASS
     Dosage: 1000 MG DAILY
     Route: 048
  14. MAGNESIUM [Concomitant]
     Indication: GASTRIC BYPASS
     Dosage: 250 MG DAILY
     Route: 048
  15. VITAMIN B1 [Concomitant]
     Indication: GASTRIC BYPASS
  16. VITAMIN D3 [Concomitant]
     Indication: GASTRIC BYPASS
     Dosage: 2000 MG DAILY
     Route: 048
  17. FLINTSTONE VITAMINS W/IRON [Concomitant]
     Indication: GASTRIC BYPASS
     Route: 048
  18. CALCIUM CITRATE WITH VITAMIN D [Concomitant]
     Indication: GASTRIC BYPASS
     Dosage: 1200 MG DAILY
     Route: 048
  19. FISH OIL [Concomitant]
     Indication: NUTRITIONAL SUPPLEMENTATION
     Dosage: 1200 MG DAILY
     Route: 048
  20. PREDNISONE [Concomitant]
     Indication: ARTHRITIS
     Dosage: 10 MG DAILY
     Route: 048

REACTIONS (1)
  - Pain [Not Recovered/Not Resolved]
